FAERS Safety Report 22055245 (Version 1)
Quarter: 2023Q1

REPORT INFORMATION
  Report Type: Spontaneous
  Country: US (occurrence: None)
  Receive Date: 20230301
  Receipt Date: 20230301
  Transmission Date: 20230417
  Serious: Yes (unspecified)
  Sender: FDA-Public Use
  Company Number: None

PATIENT
  Age: 86 Year
  Sex: Female
  Weight: 74 kg

DRUGS (1)
  1. MICAFUNGIN [Suspect]
     Active Substance: MICAFUNGIN
     Indication: Fungaemia
     Dosage: FREQUENCY : DAILY;?
     Route: 041
     Dates: start: 20230217, end: 20230220

REACTIONS (2)
  - Hypoglycaemia [None]
  - Therapy cessation [None]

NARRATIVE: CASE EVENT DATE: 20230220
